FAERS Safety Report 7484756-X (Version None)
Quarter: 2011Q2

REPORT INFORMATION
  Report Type: 
  Country: None (occurrence: None)
  Receive Date: 20110517
  Receipt Date: 20081001
  Transmission Date: 20111010
  Serious: Yes (Hospitalization, Other)
  Sender: FDA-Public Use
  Company Number: US-BAYER-2011-005469

PATIENT
  Age: 62 Year
  Sex: Female
  Weight: 90.703 kg

DRUGS (49)
  1. TRASYLOL [Suspect]
     Dosage: LOADING DOSE
     Route: 042
     Dates: start: 20040415
  2. TRASYLOL [Suspect]
     Dosage: FULL DOSE (NOS)
     Route: 042
     Dates: start: 20040415
  3. ISORDIL [Concomitant]
     Indication: PRODUCT USED FOR UNKNOWN INDICATION
     Dosage: 5 MG, TID LONG TERM
     Route: 048
  4. WHOLE BLOOD [Concomitant]
     Indication: PRODUCT USED FOR UNKNOWN INDICATION
     Dosage: 1 U, UNK
     Dates: start: 20040415
  5. PLATELETS [Concomitant]
     Indication: PRODUCT USED FOR UNKNOWN INDICATION
     Dosage: 8 U, UNK
     Dates: start: 20040415
  6. PAPAVERINE [PAPAVERINE] [Concomitant]
     Dosage: UNK
     Dates: start: 20040415, end: 20040415
  7. OMNIPAQUE 140 [Concomitant]
     Indication: CATHETERISATION CARDIAC
     Dosage: 90 ML, UNK
     Dates: start: 20040413
  8. CARDIZEM [Concomitant]
     Indication: PRODUCT USED FOR UNKNOWN INDICATION
     Dosage: 360 MG (LONG TERM), QD
     Route: 048
     Dates: end: 20040501
  9. LOVENOX [Concomitant]
     Indication: PRODUCT USED FOR UNKNOWN INDICATION
     Dosage: 100 MG, BID
     Route: 058
     Dates: start: 20040411
  10. VECURONIUM BROMIDE [Concomitant]
     Indication: PRODUCT USED FOR UNKNOWN INDICATION
     Dosage: 10 MG, UNK
     Route: 042
     Dates: start: 20040415, end: 20040415
  11. MECLIZINE [Concomitant]
     Indication: PRODUCT USED FOR UNKNOWN INDICATION
     Dosage: 25 MG, BID (LONG TERM)
     Route: 048
  12. REGLAN [Concomitant]
     Indication: PRODUCT USED FOR UNKNOWN INDICATION
     Dosage: 10 MG, UNK
  13. ANCEF [Concomitant]
     Indication: PRODUCT USED FOR UNKNOWN INDICATION
     Dosage: 1 G, UNK
     Route: 042
     Dates: start: 20040415, end: 20040415
  14. STARLIX [Concomitant]
     Indication: PRODUCT USED FOR UNKNOWN INDICATION
     Dosage: 120 MG, TID (LONG TERM)
     Route: 048
  15. THROMBIN LOCAL SOLUTION [Concomitant]
     Dosage: UNK
     Dates: start: 20040415, end: 20040415
  16. TRASYLOL [Suspect]
     Indication: CORONARY ARTERY BYPASS
     Dosage: 200 ML, CARDIOPULMONARY BYPASS PRIME
     Route: 042
     Dates: start: 20040415
  17. NEO-SYNEPHRINOL [Concomitant]
     Indication: PRODUCT USED FOR UNKNOWN INDICATION
     Dosage: 5-50 MCG/MINUTE
     Route: 042
     Dates: start: 20040415, end: 20040418
  18. CALCIUM CHLORIDE [Concomitant]
     Dosage: 1 G, UNK
     Route: 042
     Dates: start: 20040415, end: 20040415
  19. ACETYLSALICYLIC ACID SRT [Concomitant]
     Indication: PRODUCT USED FOR UNKNOWN INDICATION
     Dosage: 325 MG, QD LONG TERM
     Route: 048
  20. GLUCOPHAGE [Concomitant]
     Indication: PRODUCT USED FOR UNKNOWN INDICATION
     Dosage: 100 MG (LONG TERM), TID
     Route: 048
     Dates: end: 20040401
  21. LESCOL [Concomitant]
     Indication: PRODUCT USED FOR UNKNOWN INDICATION
     Dosage: 80 MG, QD LONG TERM
     Route: 048
  22. VERSED [Concomitant]
     Indication: PRODUCT USED FOR UNKNOWN INDICATION
     Dosage: 1-3 MG 3 TIMES IV PUSH
     Route: 042
     Dates: start: 20040415
  23. NITROGLYCERIN [Concomitant]
     Indication: PRODUCT USED FOR UNKNOWN INDICATION
     Dosage: 1 MCG/MIN UNK
     Route: 041
     Dates: start: 20040415
  24. DIPRIVAN [Concomitant]
     Indication: PRODUCT USED FOR UNKNOWN INDICATION
     Dosage: 1 MCG/KG/MIN UNK
     Route: 042
     Dates: start: 20040415
  25. DOPAMINE HCL [Concomitant]
     Indication: PRODUCT USED FOR UNKNOWN INDICATION
     Dosage: 1.5 MCG/KG/MIN UNK
     Route: 042
     Dates: start: 20040415, end: 20040425
  26. DOBUTAMINE HYDROCHLORIDE [Concomitant]
     Indication: PRODUCT USED FOR UNKNOWN INDICATION
     Dosage: 1-5 MCG/KG/MINUTE
     Route: 042
     Dates: start: 20040415
  27. MAGNESIUM SULFATE [Concomitant]
     Dosage: 2 G, UNK
     Route: 042
     Dates: start: 20040415
  28. ESMOLOL [Concomitant]
     Indication: PRODUCT USED FOR UNKNOWN INDICATION
     Dosage: 100 MG, UNK
     Route: 042
     Dates: start: 20040415, end: 20040415
  29. VASOPRESSIN [Concomitant]
     Dosage: 30 U, UNK
     Route: 042
     Dates: start: 20040415, end: 20040415
  30. DIAZIDE [Concomitant]
     Indication: PRODUCT USED FOR UNKNOWN INDICATION
     Dosage: 37.5/25 UNK, QD (LONG TERM)
     Route: 048
  31. XANAX [Concomitant]
     Indication: PRODUCT USED FOR UNKNOWN INDICATION
     Dosage: 0.25 MG - 0.5 MG UNK, PRN
     Route: 048
     Dates: start: 20040414
  32. FENTANYL [Concomitant]
     Dosage: 40 ML, UNK
     Route: 042
     Dates: start: 20040415, end: 20040415
  33. PROTAMINE SULFATE [Concomitant]
     Dosage: 400 MG, UNK
     Route: 042
     Dates: start: 20040415, end: 20040415
  34. SODIUM BICARBONATE [Concomitant]
     Dosage: 150 MEQ, UNK
     Route: 042
     Dates: start: 20040415, end: 20040415
  35. FENTANYL [Concomitant]
     Indication: PRODUCT USED FOR UNKNOWN INDICATION
     Dosage: 50 ?G, UNK
     Route: 042
     Dates: start: 20040413
  36. HEPARIN [Concomitant]
     Indication: PRODUCT USED FOR UNKNOWN INDICATION
     Dosage: 3 MG/KG, UNK
     Route: 042
     Dates: start: 20040415, end: 20040415
  37. DIOXIDE [Concomitant]
     Indication: PRODUCT USED FOR UNKNOWN INDICATION
     Dosage: UNK
  38. FRESH FROZEN PLASMA [Concomitant]
     Indication: PRODUCT USED FOR UNKNOWN INDICATION
     Dosage: 2 U, UNK
     Dates: start: 20040415
  39. RED BLOOD CELLS [Concomitant]
     Indication: PRODUCT USED FOR UNKNOWN INDICATION
     Dosage: 2 U, UNK
     Dates: start: 20040415
  40. LEVOPHED [Concomitant]
     Dosage: UNK
     Dates: start: 20040415
  41. TORADOL [Concomitant]
     Dosage: UNK
     Dates: end: 20040417
  42. IBUPROFEN [Concomitant]
     Dosage: UNK
     Dates: end: 20040417
  43. OXYGEN [Concomitant]
  44. TISSEEL KIT [Concomitant]
     Indication: PRODUCT USED FOR UNKNOWN INDICATION
     Dosage: UNK
     Dates: start: 20040415
  45. DIOVAN [Concomitant]
     Indication: PRODUCT USED FOR UNKNOWN INDICATION
     Dosage: 80 MG, QD LONG TERM
     Route: 048
  46. KETAMINE HCL [Concomitant]
     Indication: PRODUCT USED FOR UNKNOWN INDICATION
     Dosage: 200 MG, UNK
     Route: 042
     Dates: start: 20040415, end: 20040415
  47. STARLIX [Concomitant]
  48. MARCAINE [Concomitant]
     Dosage: UNK
     Dates: start: 20040415, end: 20040415
  49. THEOPHYLLINE [Concomitant]
     Dosage: UNK
     Route: 041
     Dates: start: 20040417, end: 20040425

REACTIONS (5)
  - RENAL FAILURE [None]
  - INJURY [None]
  - ANXIETY [None]
  - PAIN [None]
  - EMOTIONAL DISTRESS [None]
